FAERS Safety Report 7866873-5 (Version None)
Quarter: 2011Q4

REPORT INFORMATION
  Report Type: 
  Country: None (occurrence: None)
  Receive Date: 20111028
  Receipt Date: 20111025
  Transmission Date: 20120403
  Serious: Yes (Disabling)
  Sender: FDA-Public Use
  Company Number: US-SANOFI-AVENTIS-2011SA070415

PATIENT
  Age: 70 Year
  Sex: Male

DRUGS (1)
  1. TAXOTERE [Suspect]
     Route: 041
     Dates: start: 20110101, end: 20110101

REACTIONS (1)
  - ABASIA [None]
